FAERS Safety Report 6317613-2 (Version None)
Quarter: 2009Q3

REPORT INFORMATION
  Report Type: 
  Country: None (occurrence: None)
  Receive Date: 20090821
  Receipt Date: 20070504
  Transmission Date: 20100115
  Serious: Yes (Other)
  Sender: FDA-Public Use
  Company Number: US-ASTRAZENECA-2006UW27892

PATIENT
  Age: 12920 Day
  Sex: Male
  Weight: 99.8 kg

DRUGS (7)
  1. SEROQUEL [Suspect]
     Indication: SCHIZOPHRENIA
     Dosage: 300 MG - 800 MG
     Route: 048
     Dates: start: 20010101
  2. SEROQUEL [Suspect]
     Indication: BIPOLAR DISORDER
     Dosage: 300 MG - 800 MG
     Route: 048
     Dates: start: 20010101
  3. SEROQUEL [Suspect]
     Route: 048
  4. SEROQUEL [Suspect]
     Route: 048
  5. WELLBUTRIN SR [Concomitant]
     Dates: start: 20030225
  6. NEURONTIN [Concomitant]
     Route: 048
     Dates: start: 20050802
  7. TEGRETOL [Concomitant]
     Dates: start: 20070718

REACTIONS (5)
  - DIABETES MELLITUS [None]
  - DYSPNOEA [None]
  - GLYCOSYLATED HAEMOGLOBIN INCREASED [None]
  - MERALGIA PARAESTHETICA [None]
  - NEUROPATHY PERIPHERAL [None]
